FAERS Safety Report 4360631-4 (Version None)
Quarter: 2004Q2

REPORT INFORMATION
  Report Type: 
  Country: None (occurrence: None)
  Receive Date: 20040519
  Receipt Date: 20040519
  Transmission Date: 20050107
  Serious: Yes (Hospitalization)
  Sender: FDA-Public Use
  Company Number: None

PATIENT
  Age: 90 Year
  Sex: Male
  Weight: 60.5 kg

DRUGS (11)
  1. GATIFLOXACIN [Suspect]
     Indication: URINARY TRACT INFECTION
     Dosage: 400 MGX 1 INTRAVENOUS
     Route: 042
     Dates: start: 20040123, end: 20040123
  2. TOPROL-XL [Concomitant]
  3. NORVASC [Concomitant]
  4. PROSCAR [Concomitant]
  5. ZOCOR [Concomitant]
  6. PRINIVIL [Concomitant]
  7. PLAVIX [Concomitant]
  8. HYDROCHLOROTHIAZIDE [Concomitant]
  9. ASPIRIN [Concomitant]
  10. NITROGLYCERIN [Concomitant]
  11. XANAX [Concomitant]

REACTIONS (6)
  - CHEST PAIN [None]
  - DYSPNOEA EXERTIONAL [None]
  - ELECTROENCEPHALOGRAM ABNORMAL [None]
  - GRAND MAL CONVULSION [None]
  - SIMPLE PARTIAL SEIZURES [None]
  - URINARY TRACT INFECTION [None]
